FAERS Safety Report 6571240-0 (Version None)
Quarter: 2010Q1

REPORT INFORMATION
  Report Type: 
  Country: None (occurrence: None)
  Receive Date: 20100129
  Receipt Date: 20100119
  Transmission Date: 20100710
  Serious: Yes (Hospitalization)
  Sender: FDA-Public Use
  Company Number: 20108030

PATIENT
  Sex: Male
  Weight: 39 kg

DRUGS (4)
  1. BACLOFEN [Suspect]
     Indication: MUSCLE SPASTICITY
     Dosage: 65 MCG, DAILY, INTRATHECAL
     Route: 037
  2. DANTRIUM [Concomitant]
  3. GASTER-D TABLET [Concomitant]
  4. CERCINE [Concomitant]

REACTIONS (19)
  - ABDOMINAL DISCOMFORT [None]
  - ABDOMINAL DISTENSION [None]
  - ABNORMAL BEHAVIOUR [None]
  - AGITATION [None]
  - CHEST DISCOMFORT [None]
  - DECUBITUS ULCER [None]
  - DELIRIUM [None]
  - DRUG WITHDRAWAL SYNDROME [None]
  - FLATULENCE [None]
  - GAIT DISTURBANCE [None]
  - HALLUCINATION, VISUAL [None]
  - INTESTINAL OBSTRUCTION [None]
  - MUSCLE SPASTICITY [None]
  - NEUROGENIC BLADDER [None]
  - SENSORY LOSS [None]
  - STUPOR [None]
  - URINARY INCONTINENCE [None]
  - URINARY RETENTION [None]
  - URINARY TRACT INFECTION [None]
